FAERS Safety Report 6876279-3 (Version None)
Quarter: 2010Q3

REPORT INFORMATION
  Report Type: 
  Country: None (occurrence: None)
  Receive Date: 20100727
  Receipt Date: 20100719
  Transmission Date: 20110219
  Serious: No
  Sender: FDA-Public Use
  Company Number: B0664129A

PATIENT
  Sex: Male
  Weight: 101 kg

DRUGS (4)
  1. LAMBIPOL [Suspect]
     Indication: SCHIZOAFFECTIVE DISORDER
     Route: 048
     Dates: start: 20100628
  2. RISPERDAL [Concomitant]
     Dosage: 9MG PER DAY
  3. METHOTRIMEPRAZINE [Concomitant]
     Dosage: 25DROP PER DAY
  4. ABILIFY [Concomitant]

REACTIONS (3)
  - HAEMORRHAGE [None]
  - INJURY [None]
  - POISONING [None]
